FAERS Safety Report 9351232 (Version 2)
Quarter: 2013Q3

REPORT INFORMATION
  Report Type: Spontaneous
  Country: US (occurrence: US)
  Receive Date: 20130617
  Receipt Date: 20130814
  Transmission Date: 20140515
  Serious: Yes (Other)
  Sender: FDA-Public Use
  Company Number: US-PFIZER INC-2013178855

PATIENT
  Age: 50 Year
  Sex: Female
  Weight: 74.83 kg

DRUGS (1)
  1. NEURONTIN [Suspect]
     Indication: NERVE INJURY
     Dosage: 800 MG, 3X/DAY
     Route: 048
     Dates: start: 201302, end: 2013

REACTIONS (8)
  - Off label use [Unknown]
  - Inflammation [Unknown]
  - Pain [Unknown]
  - Musculoskeletal pain [Unknown]
  - Neck pain [Unknown]
  - Pain in extremity [Unknown]
  - Bone pain [Unknown]
  - Weight increased [Unknown]
